FAERS Safety Report 9024357 (Version 1)
Quarter: 2013Q1

REPORT INFORMATION
  Report Type: Spontaneous
  Country: US (occurrence: US)
  Receive Date: 20130121
  Receipt Date: 20130121
  Transmission Date: 20140127
  Serious: Yes (Hospitalization)
  Sender: FDA-Public Use
  Company Number: US-BAYER-2013-005093

PATIENT
  Age: 46 Year
  Sex: Female
  Weight: 82 kg

DRUGS (6)
  1. YAZ [Suspect]
  2. PROTONIX [Concomitant]
     Indication: GASTROOESOPHAGEAL REFLUX DISEASE
     Dosage: 3 [TIMES] A WEEK
  3. MULTI VITAMIN [Concomitant]
  4. MULTIVITAMINS AND IRON [Concomitant]
  5. MAALOX [Concomitant]
  6. ZOFRAN [Concomitant]

REACTIONS (3)
  - Pulmonary embolism [Recovered/Resolved]
  - Thrombophlebitis superficial [None]
  - Deep vein thrombosis [None]
